FAERS Safety Report 4757711-8 (Version None)
Quarter: 2005Q3

REPORT INFORMATION
  Report Type: 
  Country: None (occurrence: None)
  Receive Date: 20050830
  Receipt Date: 20050819
  Transmission Date: 20060218
  Serious: Yes (Other)
  Sender: FDA-Public Use
  Company Number: 2004033553

PATIENT
  Age: 23 Year
  Sex: Female

DRUGS (9)
  1. ZOLOFT [Suspect]
     Indication: BIPOLAR DISORDER
     Dosage: 50 MG (50 MG, 1 IN 1 D), ORAL
     Route: 048
     Dates: start: 20000101
  2. ZOLOFT [Suspect]
     Indication: BIPOLAR I DISORDER
     Dosage: 50 MG (50 MG, 1 IN 1 D), ORAL
     Route: 048
     Dates: start: 20000101
  3. ZOLOFT [Suspect]
     Indication: DEPRESSION
     Dosage: 50 MG (50 MG, 1 IN 1 D), ORAL
     Route: 048
     Dates: start: 20000101
  4. SYNTHROID [Concomitant]
  5. PIROXICAM [Concomitant]
  6. ROHYPNOL (FLUNITRAZEPAM) [Concomitant]
  7. L-LYSINE (LYSINE) [Concomitant]
  8. RIVOTRIL (CLONAZEPAM) [Concomitant]
  9. AMPLICTIL (CHLORPROMAZINE) [Concomitant]

REACTIONS (12)
  - ANXIETY [None]
  - BIPOLAR I DISORDER [None]
  - CONDITION AGGRAVATED [None]
  - DIZZINESS [None]
  - DYSKINESIA [None]
  - EYELID PTOSIS [None]
  - HAEMORRHAGE [None]
  - INSOMNIA [None]
  - NAUSEA [None]
  - SOMNOLENCE [None]
  - SUICIDE ATTEMPT [None]
  - TREMOR [None]
